FAERS Safety Report 6647133-7 (Version None)
Quarter: 2010Q1

REPORT INFORMATION
  Report Type: 
  Country: None (occurrence: None)
  Receive Date: 20100323
  Receipt Date: 20100312
  Transmission Date: 20100710
  Serious: Yes (Hospitalization)
  Sender: FDA-Public Use
  Company Number: PHHY2010MX15534

PATIENT
  Age: 64 Year
  Sex: Female

DRUGS (1)
  1. EXFORGE [Suspect]
     Indication: HYPERTENSION
     Dosage: 160/5 MG, 1DF PER DAY
     Route: 065
     Dates: start: 20090801

REACTIONS (4)
  - DYSPNOEA [None]
  - HYPOAESTHESIA [None]
  - RESPIRATORY ARREST [None]
  - SYNCOPE [None]
